FAERS Safety Report 16722481 (Version 6)
Quarter: 2020Q2

REPORT INFORMATION
  Report Type: Spontaneous
  Country: PT (occurrence: PT)
  Receive Date: 20190820
  Receipt Date: 20200627
  Transmission Date: 20200713
  Serious: Yes (Hospitalization)
  Sender: FDA-Public Use
  Company Number: PHHY2019PT188928

PATIENT
  Age: 48 Year
  Sex: Female
  Weight: 77 kg

DRUGS (24)
  1. METFORMIN [Interacting]
     Active Substance: METFORMIN HYDROCHLORIDE
     Indication: WEIGHT DECREASED
  2. TOPIRAMATE. [Suspect]
     Active Substance: TOPIRAMATE
     Indication: WEIGHT DECREASED
  3. BUPROPION. [Suspect]
     Active Substance: BUPROPION
     Indication: WEIGHT DECREASED
  4. PHENOLPHTHALEIN [Interacting]
     Active Substance: PHENOLPHTHALEIN
     Indication: WEIGHT DECREASED
     Dosage: COMPOUNDED PREPARATION
     Route: 065
  5. CASCARA SAGRADA [Interacting]
     Active Substance: FRANGULA PURSHIANA BARK
     Indication: WEIGHT CONTROL
     Dosage: COMPOUNDED PREPARATION
     Route: 065
  6. SENNOSIDES A+B [Interacting]
     Active Substance: SENNOSIDES A AND B
     Indication: WEIGHT CONTROL
     Dosage: UNK
     Route: 065
  7. ETHINYLESTRADIOL+GESTODENE [Interacting]
     Active Substance: ETHINYL ESTRADIOL\GESTODENE
     Indication: ORAL CONTRACEPTION
     Dosage: UNK (0.030 MG / 0.075 MG) (RE-INTRODUCED 5 MONTHS BEFORE)
     Route: 048
  8. SENNA ALEXANDRINA [Interacting]
     Active Substance: SENNA LEAF
     Indication: WEIGHT CONTROL
     Dosage: COMPOUNDED PREPARATION
     Route: 065
  9. METFORMIN [Suspect]
     Active Substance: METFORMIN HYDROCHLORIDE
     Indication: WEIGHT CONTROL
     Dosage: UNK
     Route: 065
  10. BUPROPION. [Suspect]
     Active Substance: BUPROPION
     Indication: WEIGHT CONTROL
     Dosage: COMPOUNDED PREPARATION
     Route: 065
  11. ETHINYLESTRADIOL+GESTODENE [Interacting]
     Active Substance: ETHINYL ESTRADIOL\GESTODENE
     Indication: CONTRACEPTION
  12. PHENOLPHTHALEIN [Interacting]
     Active Substance: PHENOLPHTHALEIN
     Indication: WEIGHT CONTROL
     Dosage: 180 G, QD
     Route: 048
     Dates: start: 201708, end: 201804
  13. ETHINYLESTRADIOL+GESTODENE [Interacting]
     Active Substance: ETHINYL ESTRADIOL\GESTODENE
     Indication: WEIGHT CONTROL
  14. CASCARA SAGRADA [Interacting]
     Active Substance: FRANGULA PURSHIANA BARK
     Indication: WEIGHT DECREASED
  15. CENTELLA ASIATICA [Interacting]
     Active Substance: CENTELLA ASIATICA WHOLE
     Indication: WEIGHT DECREASED
  16. ORLISTAT. [Interacting]
     Active Substance: ORLISTAT
     Indication: WEIGHT CONTROL
     Dosage: UNK
     Route: 065
  17. CHLORDIAZEPOXIDE. [Interacting]
     Active Substance: CHLORDIAZEPOXIDE
     Indication: WEIGHT CONTROL
     Dosage: UNK
     Route: 065
  18. TOPIRAMATE. [Suspect]
     Active Substance: TOPIRAMATE
     Indication: WEIGHT CONTROL
     Dosage: COMPOUNDED PREPARATION
     Route: 065
  19. CHROMIUM PICOLINATE [Suspect]
     Active Substance: CHROMIUM PICOLINATE
     Indication: WEIGHT DECREASED
  20. CENTELLA ASIATICA [Interacting]
     Active Substance: CENTELLA ASIATICA WHOLE
     Indication: WEIGHT CONTROL
     Dosage: COMPOUNDED PREPARATION
     Route: 065
  21. CHLORDIAZEPOXIDE. [Interacting]
     Active Substance: CHLORDIAZEPOXIDE
     Indication: WEIGHT DECREASED
  22. FUROSEMIDE. [Interacting]
     Active Substance: FUROSEMIDE
     Indication: WEIGHT CONTROL
     Dosage: UNK
     Route: 065
  23. CHROMIUM PICOLINATE [Suspect]
     Active Substance: CHROMIUM PICOLINATE
     Indication: WEIGHT CONTROL
     Dosage: COMPOUNDED PREPARATION
     Route: 065
  24. ORLISTAT. [Interacting]
     Active Substance: ORLISTAT
     Indication: WEIGHT DECREASED

REACTIONS (7)
  - Neurological symptom [Unknown]
  - Headache [Unknown]
  - Cerebral venous thrombosis [Recovering/Resolving]
  - Intentional product misuse [Unknown]
  - Drug interaction [Unknown]
  - Product use in unapproved indication [Unknown]
  - Off label use [Unknown]

NARRATIVE: CASE EVENT DATE: 20180404
